FAERS Safety Report 6658367-X (Version None)
Quarter: 2010Q1

REPORT INFORMATION
  Report Type: 
  Country: None (occurrence: None)
  Receive Date: 20100330
  Receipt Date: 20100301
  Transmission Date: 20100710
  Serious: No
  Sender: FDA-Public Use
  Company Number: US-BIOGENIDEC-2010BI007119

PATIENT
  Age: 45 Year
  Sex: Female

DRUGS (2)
  1. TYSABRI [Suspect]
     Indication: MULTIPLE SCLEROSIS
     Route: 042
     Dates: start: 20080917, end: 20081023
  2. TYSABRI [Suspect]
     Route: 042
     Dates: start: 20091127, end: 20100113

REACTIONS (3)
  - DIARRHOEA [None]
  - NAUSEA [None]
  - OBESITY [None]
